FAERS Safety Report 9935519 (Version 2)
Quarter: 2014Q1

REPORT INFORMATION
  Report Type: Spontaneous
  Country: US (occurrence: US)
  Receive Date: 20140228
  Receipt Date: 20140317
  Transmission Date: 20141002
  Serious: No
  Sender: FDA-Public Use
  Company Number: US-PFIZER INC-2014058624

PATIENT
  Age: 61 Year
  Sex: Female
  Weight: 63.5 kg

DRUGS (11)
  1. CHANTIX [Suspect]
     Indication: SMOKING CESSATION THERAPY
     Dosage: 0.5 MG, ONCE A DAY
     Route: 048
     Dates: start: 20140207, end: 201402
  2. CHANTIX [Suspect]
     Dosage: 0.5 MG, 2X/DAY
     Route: 048
     Dates: start: 201402, end: 201402
  3. CHANTIX [Suspect]
     Dosage: 1 MG, 2X/DAY
     Route: 048
     Dates: start: 201402
  4. CITALOPRAM [Concomitant]
     Indication: ANXIETY
     Dosage: 40 MG, DAILY
     Dates: start: 20110919
  5. CITALOPRAM [Concomitant]
     Indication: DEPRESSION
  6. ATORVASTATIN [Concomitant]
     Indication: BLOOD CHOLESTEROL INCREASED
     Dosage: 40 MG, DAILY
     Dates: start: 20131028
  7. TOVIAZ [Concomitant]
     Indication: HYPERTONIC BLADDER
     Dosage: 8 MG, DAILY
     Dates: start: 20110919
  8. HYDROXYZINE [Concomitant]
     Indication: HYPERSENSITIVITY
     Dosage: 25 MG, 4X/DAY AS NEEDED
     Dates: start: 20120724
  9. LORAZEPAM [Concomitant]
     Indication: ANXIETY DISORDER
     Dosage: 0.5 MG, AS NEEDED
     Dates: start: 20110919
  10. VITAMIN D [Concomitant]
     Dosage: 1000 IU, 3X/DAY
  11. POTASSIUM [Concomitant]
     Dosage: 99 MG, WEEKLY

REACTIONS (1)
  - Nausea [Unknown]
